FAERS Safety Report 5915938-3 (Version None)
Quarter: 2008Q4

REPORT INFORMATION
  Report Type: 
  Country: None (occurrence: None)
  Receive Date: 20081010
  Receipt Date: 20080930
  Transmission Date: 20090506
  Serious: Yes (Hospitalization)
  Sender: FDA-Public Use
  Company Number: CA-MERCK-0806CAN00026

PATIENT
  Age: 65 Year
  Sex: Female
  Weight: 115 kg

DRUGS (9)
  1. COZAAR [Suspect]
     Indication: ESSENTIAL HYPERTENSION
     Route: 048
     Dates: start: 20080509, end: 20080618
  2. HYDROCHLOROTHIAZIDE AND TRIAMTERENE [Concomitant]
     Route: 065
     Dates: start: 20060101, end: 20080509
  3. ALBUTEROL [Concomitant]
     Route: 065
  4. FLUTICASONE PROPIONATE AND SALMETEROL XINAFOATE [Concomitant]
     Route: 065
  5. HYZAAR [Concomitant]
     Indication: ESSENTIAL HYPERTENSION
     Route: 048
     Dates: start: 20080619, end: 20080910
  6. HYZAAR [Concomitant]
     Route: 048
     Dates: start: 20080918
  7. ALLOPURINOL [Concomitant]
     Indication: GOUT
     Route: 065
  8. CALCIUM (UNSPECIFIED) [Concomitant]
     Indication: PROPHYLAXIS
     Route: 065
  9. VITAMIN D (UNSPECIFIED) [Concomitant]
     Indication: PROPHYLAXIS
     Route: 065

REACTIONS (3)
  - DYSPNOEA [None]
  - MUSCULAR WEAKNESS [None]
  - PNEUMONIA [None]
